FAERS Safety Report 4996136-7 (Version None)
Quarter: 2006Q2

REPORT INFORMATION
  Report Type: 
  Country: None (occurrence: None)
  Receive Date: 20060504
  Receipt Date: 20060421
  Transmission Date: 20061013
  Serious: Yes (Hospitalization, Disabling)
  Sender: FDA-Public Use
  Company Number: 34487

PATIENT
  Age: 19 Year
  Sex: Female

DRUGS (1)
  1. ALCAINE [Suspect]

REACTIONS (12)
  - BLEPHARITIS [None]
  - CONJUNCTIVAL HYPERAEMIA [None]
  - CORNEAL EPITHELIUM DEFECT [None]
  - CORNEAL INFILTRATES [None]
  - DERMATITIS CONTACT [None]
  - DRUG DEPENDENCE [None]
  - EYE PAIN [None]
  - FACTITIOUS DISORDER [None]
  - HYPOPYON [None]
  - KERATOPATHY [None]
  - REFUSAL OF TREATMENT BY PATIENT [None]
  - VISUAL ACUITY REDUCED [None]
